FAERS Safety Report 19733346 (Version 1)
Quarter: 2021Q3

REPORT INFORMATION
  Report Type: Spontaneous
  Country: IT (occurrence: IT)
  Receive Date: 20210823
  Receipt Date: 20210823
  Transmission Date: 20211014
  Serious: Yes (Hospitalization)
  Sender: FDA-Public Use
  Company Number: IT-AUROBINDO-AUR-APL-2021-035115

PATIENT
  Age: 78 Year
  Sex: Male
  Weight: 72 kg

DRUGS (1)
  1. DOCETAXEL CONCENTRATE FOR SOLUTION FOR INFUSION [Suspect]
     Active Substance: DOCETAXEL
     Indication: NEOPLASM PROSTATE
     Dosage: 120 MILLIGRAM, CYCLICAL
     Route: 042
     Dates: start: 20210511, end: 20210511

REACTIONS (3)
  - Rash [Recovered/Resolved]
  - Hot flush [Recovered/Resolved]
  - Blood pressure fluctuation [Recovered/Resolved]

NARRATIVE: CASE EVENT DATE: 20210511
